FAERS Safety Report 23481081 (Version 1)
Quarter: 2024Q1

REPORT INFORMATION
  Report Type: Spontaneous
  Country: US (occurrence: US)
  Receive Date: 20240205
  Receipt Date: 20240205
  Transmission Date: 20240410
  Serious: Yes (Other)
  Sender: FDA-Public Use
  Company Number: US-AYTU BIOPHARMA, INC.-2024AYT000007

PATIENT
  Age: 8 Year
  Sex: Female

DRUGS (1)
  1. ADZENYS XR-ODT [Suspect]
     Active Substance: AMPHETAMINE
     Indication: Attention deficit hyperactivity disorder
     Dosage: UNK
     Route: 065
     Dates: start: 202212

REACTIONS (1)
  - Suicidal ideation [Recovered/Resolved]
